FAERS Safety Report 21321028 (Version 2)
Quarter: 2022Q3

REPORT INFORMATION
  Report Type: Spontaneous
  Country: DE (occurrence: DE)
  Receive Date: 20220912
  Receipt Date: 20220924
  Transmission Date: 20221026
  Serious: Yes (Hospitalization, Other)
  Sender: FDA-Public Use
  Company Number: DE-CELLTRION INC.-2022DE014499

PATIENT

DRUGS (12)
  1. RITUXIMAB [Interacting]
     Active Substance: RITUXIMAB
     Indication: Systemic scleroderma
     Dosage: 1000 MG, EVERY 6 MONTHS
     Route: 042
  2. MYCOPHENOLATE MOFETIL [Suspect]
     Active Substance: MYCOPHENOLATE MOFETIL
     Indication: Systemic scleroderma
     Dosage: UNK
     Dates: end: 2017
  3. PFIZER-BIONTECH COVID-19 VACCINE [Interacting]
     Active Substance: TOZINAMERAN
     Indication: COVID-19 prophylaxis
     Dosage: ADMINISTERED IN APR AND JUN/2021 WITH A 5-WEEK INTERVAL
  4. SILDENAFIL [Concomitant]
     Active Substance: SILDENAFIL
     Dosage: 20 MG, TID
  5. VALSARTAN AND HYDROCHLOROTHIAZIDE [Concomitant]
     Active Substance: HYDROCHLOROTHIAZIDE\VALSARTAN
     Dosage: 5 MG, DAILY; 160/12, 5 MG/PER DAY
  6. AMLODIPINE [Concomitant]
     Active Substance: AMLODIPINE BESYLATE
     Dosage: 10 MG, DAILY
  7. LEVOTHYROXINE [Concomitant]
     Active Substance: LEVOTHYROXINE
     Dosage: 100 MICROGRAM, DAILY; 100 MICROGRAMS/PER DAY
  8. CHOLECALCIFEROL [Concomitant]
     Active Substance: CHOLECALCIFEROL
     Dosage: 20000 INTERNATIONAL UNIT, TWICE A WEEK
  9. ALBUTEROL SULFATE\IPRATROPIUM BROMIDE [Concomitant]
     Active Substance: ALBUTEROL SULFATE\IPRATROPIUM BROMIDE
  10. DEXAMETHASONE [Concomitant]
     Active Substance: DEXAMETHASONE
     Dosage: DEXAMETHASONE 6 MG/DAY AND CONTINUED FOR 7 DAYS
  11. COVID-19 VACCINE [Concomitant]
     Dosage: UNK
     Dates: start: 202107
  12. BARICITINIB [Concomitant]
     Active Substance: BARICITINIB
     Dosage: 4 MG/DAY WAS ADDED AND CONTINUED FOR 7 DAYS

REACTIONS (5)
  - COVID-19 pneumonia [Recovered/Resolved]
  - Drug interaction [Unknown]
  - Arthritis [Unknown]
  - Vaccination failure [Unknown]
  - Off label use [Unknown]
